FAERS Safety Report 7436868-4 (Version None)
Quarter: 2011Q2

REPORT INFORMATION
  Report Type: 
  Country: None (occurrence: None)
  Receive Date: 20110426
  Receipt Date: 20110411
  Transmission Date: 20111010
  Serious: Yes (Other)
  Sender: FDA-Public Use
  Company Number: US-BAYER-2011-032349

PATIENT
  Sex: Female

DRUGS (1)
  1. MIRENA [Suspect]
     Dosage: 20 ?G, CONT
     Route: 015
     Dates: start: 20050201, end: 20110201

REACTIONS (15)
  - NIGHT SWEATS [None]
  - UNEVALUABLE EVENT [None]
  - ABDOMINAL PAIN UPPER [None]
  - BLOOD FOLLICLE STIMULATING HORMONE INCREASED [None]
  - FATIGUE [None]
  - AFFECT LABILITY [None]
  - MENOPAUSAL SYMPTOMS [None]
  - CRYING [None]
  - ACNE [None]
  - HYPERTRICHOSIS [None]
  - ABDOMINAL DISTENSION [None]
  - NERVOUSNESS [None]
  - VENTRICULAR EXTRASYSTOLES [None]
  - DEPRESSION [None]
  - IRRITABILITY [None]
